FAERS Safety Report 4276911-7 (Version None)
Quarter: 2004Q1

REPORT INFORMATION
  Report Type: 
  Country: None (occurrence: None)
  Receive Date: 20040120
  Receipt Date: 20040108
  Transmission Date: 20041129
  Serious: Yes (Hospitalization, Other)
  Sender: FDA-Public Use
  Company Number: 2003119148

PATIENT
  Age: 61 Year
  Sex: Female
  Weight: 59 kg

DRUGS (12)
  1. LIPITOR [Suspect]
     Indication: HYPERLIPIDAEMIA
     Dosage: 5 MG DAILY ORAL
     Route: 048
     Dates: start: 20001108, end: 20031113
  2. INFLUENZA VACCINE (INFLUENZA VACCINE) [Suspect]
     Indication: INFLUENZA IMMUNISATION
     Dosage: 0.5 CC ONCE SUBCUTANEOUS
     Route: 058
     Dates: start: 20031104, end: 20031104
  3. AMLODIPINE BESYLATE [Concomitant]
  4. GLIMEPIRIDE [Concomitant]
  5. RISPERIDONE [Concomitant]
  6. FLUVOXAMINE MALEATE [Concomitant]
  7. LORAZEPAM [Concomitant]
  8. EHTYL LOFLAZEPATE (ETHYL LOFLAZEPATE) [Concomitant]
  9. CARBAMAZEPINE [Concomitant]
  10. LITHIUM CARBONATE [Concomitant]
  11. TRIAZOLAM [Concomitant]
  12. BROTIZOLAM (BROTIZOLAM) [Concomitant]

REACTIONS (8)
  - ALANINE AMINOTRANSFERASE INCREASED [None]
  - ASPARTATE AMINOTRANSFERASE INCREASED [None]
  - BLOOD CREATINE PHOSPHOKINASE INCREASED [None]
  - BLOOD LACTATE DEHYDROGENASE INCREASED [None]
  - BODY TEMPERATURE DECREASED [None]
  - NEUROLEPTIC MALIGNANT SYNDROME [None]
  - PYREXIA [None]
  - WHITE BLOOD CELL COUNT INCREASED [None]
